FAERS Safety Report 21874272 (Version 1)
Quarter: 2023Q1

REPORT INFORMATION
  Report Type: Spontaneous
  Country: CN (occurrence: CN)
  Receive Date: 20230117
  Receipt Date: 20230117
  Transmission Date: 20230418
  Serious: Yes (Hospitalization, Other)
  Sender: FDA-Public Use
  Company Number: CN-MYLANLABS-2023M1003178

PATIENT
  Age: 12 Year
  Sex: Female

DRUGS (5)
  1. SERTRALINE HYDROCHLORIDE [Suspect]
     Active Substance: SERTRALINE HYDROCHLORIDE
     Indication: Antidepressant therapy
     Dosage: 25 MILLIGRAM, QD
     Route: 048
     Dates: start: 20191024, end: 20191027
  2. IBUPROFEN [Suspect]
     Active Substance: IBUPROFEN
     Indication: Analgesic therapy
     Dosage: 0.2 GRAM, Q8H
     Route: 048
     Dates: start: 20191024, end: 20191105
  3. ESOMEPRAZOLE MAGNESIUM [Suspect]
     Active Substance: ESOMEPRAZOLE MAGNESIUM
     Indication: Gastrointestinal disorder prophylaxis
     Dosage: 20 MILLIGRAM, QD (ENTERIC-COATED TABLETS)
     Route: 048
     Dates: start: 20191027, end: 20191029
  4. Total glucosides of white paeony [Concomitant]
     Indication: Immune system disorder
     Dosage: 0.6 GRAM, BID
     Route: 048
     Dates: start: 20191024, end: 20191117
  5. OMEPRAZOLE SODIUM [Concomitant]
     Active Substance: OMEPRAZOLE SODIUM
     Indication: Gastrointestinal disorder prophylaxis
     Dosage: 40 MILLIGRAM, QD
     Route: 042
     Dates: start: 20191031, end: 20191117

REACTIONS (4)
  - Stevens-Johnson syndrome [Recovering/Resolving]
  - Hepatic function abnormal [Unknown]
  - Herpes virus infection [Unknown]
  - Drug ineffective [Unknown]

NARRATIVE: CASE EVENT DATE: 20191101
